FAERS Safety Report 7758512-9 (Version None)
Quarter: 2011Q3

REPORT INFORMATION
  Report Type: 
  Country: None (occurrence: None)
  Receive Date: 20110919
  Receipt Date: 20110906
  Transmission Date: 20111222
  Serious: Yes (Death, Hospitalization, Other)
  Sender: FDA-Public Use
  Company Number: GB-RANBAXY-2010R1-38647

PATIENT
  Age: 75 Year
  Sex: Female
  Weight: 62.6 kg

DRUGS (17)
  1. ARAVA [Suspect]
     Dosage: 20 MG, QD
     Route: 048
  2. BUDESONIDE [Suspect]
     Indication: ASTHMA
     Dosage: UNK
     Route: 065
     Dates: start: 20020301
  3. MIDAZOLAM HCL [Suspect]
     Indication: ANAESTHESIA
     Dosage: UNK
     Route: 042
     Dates: start: 20020301, end: 20020301
  4. ASPIRIN [Suspect]
     Indication: PAIN
     Dosage: UNK
     Route: 065
     Dates: start: 20020301
  5. FENTANYL [Suspect]
     Indication: ANAESTHESIA
     Dosage: UNK
     Route: 042
     Dates: start: 20020301, end: 20020301
  6. QUININE SULFATE [Suspect]
     Indication: MUSCLE SPASMS
     Dosage: UNK
     Route: 065
  7. ARAVA [Suspect]
     Indication: RHEUMATOID ARTHRITIS
     Dosage: 20 MG, QD
     Route: 048
     Dates: start: 20020301
  8. PANCURONIUM BROMIDE [Suspect]
     Indication: MUSCLE RELAXANT THERAPY
     Dosage: UNK
     Route: 065
     Dates: start: 20020301, end: 20020301
  9. ATORVASTATIN [Suspect]
     Indication: HYPERCHOLESTEROLAEMIA
     Dosage: UNK
     Route: 065
     Dates: start: 19990101
  10. NITROGLYCERIN [Suspect]
     Indication: PAIN
     Dosage: UNK
     Route: 048
     Dates: start: 20020301
  11. PROPOFOL [Suspect]
     Indication: ANAESTHESIA
     Dosage: UNK
     Route: 042
     Dates: start: 20020301, end: 20020301
  12. NITROGLYCERIN [Concomitant]
     Indication: ANGINA PECTORIS
     Dosage: UNK, AS NECESSARY.
     Route: 065
  13. LANSOPRAZOLE [Suspect]
     Indication: DUODENAL ULCER
     Dosage: UNK
     Route: 065
     Dates: start: 20010301
  14. LISINOPRIL [Suspect]
     Indication: HYPERTENSION
     Dosage: UNK
     Route: 048
     Dates: start: 20020301
  15. DILTIAZEM [Suspect]
     Indication: HYPERTENSION
     Dosage: UNK
     Route: 065
     Dates: start: 20020301, end: 20020301
  16. ACETAMINPHEN AND CODEINE PHOSPHATE [Suspect]
     Indication: RHEUMATOID ARTHRITIS
     Dosage: UNK
     Route: 065
     Dates: start: 20020301
  17. FLIXONASE [Concomitant]
     Indication: PRODUCT USED FOR UNKNOWN INDICATION
     Dosage: 1 UG, BID
     Route: 045

REACTIONS (12)
  - DUODENAL ULCER [None]
  - HAEMATEMESIS [None]
  - RENAL FAILURE [None]
  - ABDOMINAL RIGIDITY [None]
  - CORONARY ARTERY DISEASE [None]
  - GASTROINTESTINAL HAEMORRHAGE [None]
  - DIVERTICULITIS [None]
  - INTESTINAL ISCHAEMIA [None]
  - MULTI-ORGAN FAILURE [None]
  - ACUTE HEPATIC FAILURE [None]
  - LABILE BLOOD PRESSURE [None]
  - ABDOMINAL PAIN UPPER [None]
